FAERS Safety Report 4264816-7 (Version None)
Quarter: 2004Q1

REPORT INFORMATION
  Report Type: 
  Country: None (occurrence: None)
  Receive Date: 20040105
  Receipt Date: 20031223
  Transmission Date: 20041129
  Serious: Yes (Death, Life-Threatening)
  Sender: FDA-Public Use
  Company Number: OXCD20030013

PATIENT
  Age: 41 Year
  Sex: Female

DRUGS (5)
  1. OXYCODONE HCL [Suspect]
     Dates: start: 20020101, end: 20020101
  2. METHADONE HCL [Suspect]
     Dates: start: 20020101, end: 20020101
  3. DOXEPIN HCL [Suspect]
     Dates: start: 20020101, end: 20020101
  4. DIAZEPAM [Suspect]
     Dates: start: 20020101, end: 20020101
  5. MARIJUANA [Suspect]
     Dates: start: 20020101, end: 20020101

REACTIONS (1)
  - MULTIPLE DRUG OVERDOSE [None]
